FAERS Safety Report 8151696-2 (Version None)
Quarter: 2012Q1

REPORT INFORMATION
  Report Type: 
  Country: None (occurrence: None)
  Receive Date: 20120221
  Receipt Date: 20120209
  Transmission Date: 20120608
  Serious: Yes (Hospitalization)
  Sender: FDA-Public Use
  Company Number: FI-AMGEN-FINSP2012009041

PATIENT
  Age: 55 Year
  Sex: Male

DRUGS (4)
  1. ENBREL [Suspect]
     Indication: RHEUMATOID ARTHRITIS
     Dosage: 50 MG, WEEKLY
     Route: 058
     Dates: start: 20111209, end: 20111223
  2. PREDNISOLONE [Concomitant]
     Dosage: 5-20 MG DAILY
     Route: 048
     Dates: start: 20060302
  3. ARAVA [Concomitant]
     Indication: RHEUMATOID ARTHRITIS
     Dosage: 20 MG, 1X/DAY
     Route: 048
     Dates: start: 20101209, end: 20111224
  4. OXIKLORIN [Concomitant]
     Indication: RHEUMATOID ARTHRITIS
     Dosage: 300 MG, 1X/DAY
     Route: 048
     Dates: start: 20060302, end: 20111224

REACTIONS (6)
  - LUNG DISORDER [None]
  - PNEUMONIA [None]
  - INFECTION [None]
  - COUGH [None]
  - C-REACTIVE PROTEIN INCREASED [None]
  - PYREXIA [None]
